FAERS Safety Report 5200042-2 (Version None)
Quarter: 2007Q1

REPORT INFORMATION
  Report Type: 
  Country: None (occurrence: None)
  Receive Date: 20070105
  Receipt Date: 20061227
  Transmission Date: 20070707
  Serious: Yes (Hospitalization, Other)
  Sender: FDA-Public Use
  Company Number: US-ELI_LILLY_AND_COMPANY-US200612004426

PATIENT
  Sex: Female

DRUGS (2)
  1. HUMATROPE [Suspect]
     Indication: OSTEOPOROSIS
     Dosage: UNK, UNK
     Dates: start: 20051001
  2. RYTHMOL [Concomitant]
     Indication: CARDIAC DISORDER

REACTIONS (3)
  - BURNS FIRST DEGREE [None]
  - CARDIAC FAILURE [None]
  - CONVULSION [None]
